FAERS Safety Report 5893310-2 (Version None)
Quarter: 2008Q3

REPORT INFORMATION
  Report Type: 
  Country: None (occurrence: None)
  Receive Date: 20080923
  Receipt Date: 20080916
  Transmission Date: 20090109
  Serious: Yes (Hospitalization)
  Sender: FDA-Public Use
  Company Number: B0536697A

PATIENT
  Age: 22 Year
  Sex: Female
  Weight: 50.9 kg

DRUGS (2)
  1. MALARONE [Suspect]
     Indication: DRUG USE FOR UNKNOWN INDICATION
     Route: 065
     Dates: start: 20080801, end: 20080904
  2. ANTIBIOTIC [Concomitant]

REACTIONS (15)
  - ABDOMINAL PAIN [None]
  - ABDOMINAL PAIN UPPER [None]
  - CHEST PAIN [None]
  - CIRCULATORY COLLAPSE [None]
  - DIPLOPIA [None]
  - DIZZINESS [None]
  - EPISTAXIS [None]
  - GINGIVAL BLEEDING [None]
  - HEADACHE [None]
  - HYPERACUSIS [None]
  - MALAISE [None]
  - PAIN IN EXTREMITY [None]
  - PSYCHOTIC DISORDER [None]
  - STOMATITIS [None]
  - VIRAL INFECTION [None]
